FAERS Safety Report 4952547-7 (Version None)
Quarter: 2006Q1

REPORT INFORMATION
  Report Type: 
  Country: None (occurrence: None)
  Receive Date: 20060323
  Receipt Date: 20060316
  Transmission Date: 20060701
  Serious: Yes (Other)
  Sender: FDA-Public Use
  Company Number: US-MERCK-0603USA03006

PATIENT
  Age: 63 Year
  Sex: Male
  Weight: 84 kg

DRUGS (4)
  1. VIOXX [Suspect]
     Indication: ARTHRITIS
     Route: 048
     Dates: start: 20020122, end: 20041001
  2. VIOXX [Suspect]
     Route: 048
     Dates: start: 20011025, end: 20021025
  3. VIOXX [Suspect]
     Route: 048
     Dates: start: 20011025, end: 20021025
  4. VIOXX [Suspect]
     Route: 048
     Dates: start: 20020122, end: 20041001

REACTIONS (1)
  - CEREBROVASCULAR ACCIDENT [None]
